FAERS Safety Report 4653464-2 (Version None)
Quarter: 2005Q2

REPORT INFORMATION
  Report Type: 
  Country: None (occurrence: None)
  Receive Date: 20050505
  Receipt Date: 20041203
  Transmission Date: 20051028
  Serious: Yes (Other)
  Sender: FDA-Public Use
  Company Number: GB-GLAXOSMITHKLINE-B0360524A

PATIENT
  Sex: Male

DRUGS (5)
  1. PAROXETINE HYDROCHLORIDE [Suspect]
     Route: 065
     Dates: start: 19990101
  2. AMITRIPTYLINE HCL TAB [Concomitant]
  3. PIMOZIDE [Concomitant]
  4. TRIFLUOPERAZINE HCL [Concomitant]
  5. CHLORPROMAZINE [Concomitant]

REACTIONS (7)
  - CONDITION AGGRAVATED [None]
  - DEPRESSIVE SYMPTOM [None]
  - DRUG WITHDRAWAL SYNDROME [None]
  - HALLUCINATION, VISUAL [None]
  - PANIC ATTACK [None]
  - PARAESTHESIA [None]
  - PSYCHIATRIC SYMPTOM [None]
